FAERS Safety Report 25331057 (Version 1)
Quarter: 2025Q2

REPORT INFORMATION
  Report Type: Spontaneous
  Country: US (occurrence: US)
  Receive Date: 20250519
  Receipt Date: 20250519
  Transmission Date: 20250716
  Serious: No
  Sender: DAIICHI
  Company Number: US-DAIICHI SANKYO, INC.-DS-2025-141118-USAA

PATIENT
  Sex: Female

DRUGS (1)
  1. TURALIO [Suspect]
     Active Substance: PEXIDARTINIB HYDROCHLORIDE
     Indication: Giant cell tumour of tendon sheath
     Dosage: 250 MG, BID (125MG 2 CAPSULES BY MOUTH TWICE DAILY)
     Route: 048
     Dates: start: 20250508

REACTIONS (2)
  - Flank pain [Recovering/Resolving]
  - Pruritus [Recovering/Resolving]
